FAERS Safety Report 22951400 (Version 2)
Quarter: 2023Q4

REPORT INFORMATION
  Report Type: Report from Study
  Country: US (occurrence: US)
  Receive Date: 20230917
  Receipt Date: 20231212
  Transmission Date: 20240110
  Serious: Yes (Hospitalization)
  Sender: FDA-Public Use
  Company Number: US-ABBVIE-5407846

PATIENT
  Sex: Male

DRUGS (4)
  1. VENCLEXTA [Suspect]
     Active Substance: VENETOCLAX
     Indication: Chronic lymphocytic leukaemia
     Dosage: LAST ADMIN DATE- AUG 2023?FORM STRENGTH: 100 MILLIGRAM
     Route: 048
     Dates: start: 202308
  2. VENCLEXTA [Suspect]
     Active Substance: VENETOCLAX
     Indication: Chronic lymphocytic leukaemia
     Route: 048
     Dates: start: 202311
  3. VENCLEXTA [Suspect]
     Active Substance: VENETOCLAX
     Indication: Chronic lymphocytic leukaemia
     Dosage: FORM STRENGTH: 420 MILLIGRAM, LAST ADMIN DATE- 2023
     Route: 048
     Dates: start: 202308
  4. IMBRUVICA [Suspect]
     Active Substance: IBRUTINIB
     Indication: Product used for unknown indication
     Route: 048
     Dates: end: 2023

REACTIONS (7)
  - Joint neoplasm [Unknown]
  - Alopecia [Unknown]
  - Rash [Unknown]
  - Gastric ulcer [Unknown]
  - Fatigue [Unknown]
  - Night sweats [Unknown]
  - Blood disorder [Unknown]

NARRATIVE: CASE EVENT DATE: 20230101
